FAERS Safety Report 9266174 (Version 1)
Quarter: 2013Q2

REPORT INFORMATION
  Report Type: Spontaneous
  Country: US (occurrence: US)
  Receive Date: 20130502
  Receipt Date: 20130502
  Transmission Date: 20140414
  Serious: Yes (Other)
  Sender: FDA-Public Use
  Company Number: US-GE HEALTHCARE MEDICAL DIAGNOSTICS-OMPQ-PR-1304S-0528

PATIENT
  Age: 69 Year
  Sex: Female
  Weight: 120.31 kg

DRUGS (2)
  1. OMNIPAQUE [Suspect]
     Indication: ABDOMINAL PAIN UPPER
     Route: 042
     Dates: start: 20130319, end: 20130319
  2. OMNIPAQUE [Suspect]
     Indication: DIAGNOSTIC PROCEDURE

REACTIONS (2)
  - Chest discomfort [Recovered/Resolved]
  - Dyspnoea [Recovered/Resolved]
